FAERS Safety Report 14406099 (Version 1)
Quarter: 2018Q1

REPORT INFORMATION
  Report Type: Spontaneous
  Country: US (occurrence: US)
  Receive Date: 20180118
  Receipt Date: 20180118
  Transmission Date: 20180509
  Serious: Yes (Hospitalization)
  Sender: FDA-Public Use
  Company Number: US-TEVA-2018-US-848344

PATIENT
  Age: 25 Year
  Sex: Female

DRUGS (1)
  1. AUSTEDO [Suspect]
     Active Substance: DEUTETRABENAZINE
     Indication: HUNTINGTON^S DISEASE
     Dosage: 48 MILLIGRAM DAILY; TWO 12MG TABLETS TWICE DAILY
     Route: 065
     Dates: start: 20170902

REACTIONS (1)
  - Pharyngitis streptococcal [Unknown]
